FAERS Safety Report 8342804-9 (Version None)
Quarter: 2012Q2

REPORT INFORMATION
  Report Type: 
  Country: None (occurrence: None)
  Receive Date: 20120503
  Receipt Date: 20120417
  Transmission Date: 20120825
  Serious: Yes (Death, Life-Threatening, Other)
  Sender: FDA-Public Use
  Company Number: FRA-SPN-2011001

PATIENT
  Sex: Female

DRUGS (3)
  1. AMMONAPS [Concomitant]
  2. CATECHOLAMINE [Concomitant]
  3. CARBAGLU [Suspect]
     Indication: HYPERAMMONAEMIA
     Dosage: ORAL
     Route: 048
     Dates: start: 20101201

REACTIONS (14)
  - ABDOMINAL PAIN [None]
  - CIRCULATORY COLLAPSE [None]
  - BLOOD LACTIC ACID INCREASED [None]
  - VOMITING [None]
  - RENAL FAILURE [None]
  - CELL DEATH [None]
  - ALANINE AMINOTRANSFERASE INCREASED [None]
  - RESPIRATORY DISORDER [None]
  - CONDITION AGGRAVATED [None]
  - CARDIAC ARREST [None]
  - MULTI-ORGAN FAILURE [None]
  - DIALYSIS [None]
  - HEPATIC FAILURE [None]
  - HYPERAMMONAEMIA [None]
